FAERS Safety Report 16744639 (Version 5)
Quarter: 2023Q1

REPORT INFORMATION
  Report Type: Spontaneous
  Country: PL (occurrence: PL)
  Receive Date: 20190827
  Receipt Date: 20230225
  Transmission Date: 20230418
  Serious: Yes (Death, Life-Threatening, Hospitalization, Other)
  Sender: FDA-Public Use
  Company Number: PL-AUROBINDO-AUR-APL-2019-056195

PATIENT
  Age: 46 Year
  Sex: Female

DRUGS (34)
  1. AMOXICILLIN\CLAVULANIC ACID [Suspect]
     Active Substance: AMOXICILLIN\CLAVULANIC ACID
     Indication: Bacteriuria
     Dosage: UNK
     Route: 065
  2. AMOXICILLIN\CLAVULANIC ACID [Suspect]
     Active Substance: AMOXICILLIN\CLAVULANIC ACID
     Indication: Antibiotic therapy
  3. ARIPIPRAZOLE [Interacting]
     Active Substance: ARIPIPRAZOLE
     Indication: Bipolar disorder
     Dosage: UNK
     Route: 048
  4. ARIPIPRAZOLE [Interacting]
     Active Substance: ARIPIPRAZOLE
     Dosage: 7.5 MILLIGRAM, ONCE A DAY
     Route: 048
  5. CEFUROXIME [Suspect]
     Active Substance: CEFUROXIME
     Indication: Antibiotic therapy
     Dosage: UNK
     Route: 065
  6. CEFUROXIME [Suspect]
     Active Substance: CEFUROXIME
     Indication: Bacteriuria
     Dosage: 50 MILLIGRAM, ONCE A DAY
     Route: 048
  7. CEFUROXIME [Suspect]
     Active Substance: CEFUROXIME
     Indication: Bacterial test positive
  8. CEFUROXIME [Suspect]
     Active Substance: CEFUROXIME
     Indication: Urinary tract infection
  9. CEFUROXIME [Suspect]
     Active Substance: CEFUROXIME
     Indication: Bacterial infection
  10. LEVOFLOXACIN [Suspect]
     Active Substance: LEVOFLOXACIN
     Indication: Bacteriuria
     Dosage: UNK
     Route: 065
  11. LEVOFLOXACIN [Suspect]
     Active Substance: LEVOFLOXACIN
     Indication: Antibiotic therapy
  12. LEVOFLOXACIN [Suspect]
     Active Substance: LEVOFLOXACIN
     Indication: Bacterial infection
  13. OLANZAPINE [Interacting]
     Active Substance: OLANZAPINE
     Indication: Bipolar disorder
     Dosage: 10 MILLIGRAM, DAILY,LONG-TERM THERAPY
     Route: 065
  14. PANTOPRAZOLE [Suspect]
     Active Substance: PANTOPRAZOLE
     Indication: Reflux gastritis
     Dosage: UNK
     Route: 048
  15. PANTOPRAZOLE [Suspect]
     Active Substance: PANTOPRAZOLE
     Indication: Reflux gastritis
     Dosage: 40 MILLIGRAM, ONCE A DAY
     Route: 048
  16. PANTOPRAZOLE [Suspect]
     Active Substance: PANTOPRAZOLE
     Dosage: 10 MILLIGRAM, ONCE A DAY
     Route: 048
  17. PANTOPRAZOLE [Suspect]
     Active Substance: PANTOPRAZOLE
     Indication: Reflux gastritis
     Dosage: 10 MILLIGRAM PER DAY
     Route: 065
  18. PANTOPRAZOLE [Suspect]
     Active Substance: PANTOPRAZOLE
     Indication: Gastrooesophageal reflux disease
     Dosage: 40 MILLIGRAM, DAILY
     Route: 065
  19. CIPROFLOXACIN LACTATE [Suspect]
     Active Substance: CIPROFLOXACIN LACTATE
     Indication: Bacteriuria
     Dosage: UNK
     Route: 065
  20. CIPROFLOXACIN LACTATE [Suspect]
     Active Substance: CIPROFLOXACIN LACTATE
     Indication: Antibiotic therapy
  21. CIPROFLOXACIN LACTATE [Suspect]
     Active Substance: CIPROFLOXACIN LACTATE
     Indication: Bacterial test positive
  22. CEFUROXIME AXETIL [Suspect]
     Active Substance: CEFUROXIME AXETIL
     Indication: Bacteriuria
     Dosage: UNK
     Route: 065
  23. CEFUROXIME AXETIL [Suspect]
     Active Substance: CEFUROXIME AXETIL
     Indication: Antibiotic therapy
  24. ITOPRIDE [Interacting]
     Active Substance: ITOPRIDE
     Indication: Reflux gastritis
     Dosage: 50 MILLIGRAM, 3 TIMES A DAY
     Route: 065
  25. ITOPRIDE [Interacting]
     Active Substance: ITOPRIDE
     Indication: Bipolar disorder
     Dosage: 150 MILLIGRAM, ONCE A DAY
     Route: 065
  26. ITOPRIDE [Interacting]
     Active Substance: ITOPRIDE
     Indication: Gastrooesophageal reflux disease
     Dosage: 90 MILLIGRAM, ONCE A DAY
     Route: 065
  27. ITOPRIDE [Interacting]
     Active Substance: ITOPRIDE
     Indication: Gastrooesophageal reflux disease
  28. NIFUROXAZIDE [Suspect]
     Active Substance: NIFUROXAZIDE
     Indication: Clostridium difficile infection
     Dosage: UNK
     Route: 065
  29. NIFUROXAZIDE [Suspect]
     Active Substance: NIFUROXAZIDE
     Indication: Antibiotic therapy
  30. SULFAMETHOXAZOLE\TRIMETHOPRIM [Suspect]
     Active Substance: SULFAMETHOXAZOLE\TRIMETHOPRIM
     Indication: Bacteriuria
     Dosage: UNK
     Route: 065
  31. SULFAMETHOXAZOLE\TRIMETHOPRIM [Suspect]
     Active Substance: SULFAMETHOXAZOLE\TRIMETHOPRIM
     Indication: Antibiotic therapy
  32. SULFAMETHOXAZOLE\TRIMETHOPRIM [Suspect]
     Active Substance: SULFAMETHOXAZOLE\TRIMETHOPRIM
     Indication: Bacterial infection
  33. TRIMETHOPRIM [Suspect]
     Active Substance: TRIMETHOPRIM
     Indication: Bacteriuria
     Dosage: UNK
     Route: 065
  34. ARIPIPRAZOLE [Concomitant]
     Active Substance: ARIPIPRAZOLE
     Indication: Bipolar disorder
     Dosage: 7.5 MILLIGRAM, DAILY
     Route: 065

REACTIONS (30)
  - Death [Fatal]
  - Clostridium difficile infection [Fatal]
  - Trimethylaminuria [Fatal]
  - Condition aggravated [Fatal]
  - Peritonitis [Fatal]
  - Intestinal perforation [Fatal]
  - Megacolon [Fatal]
  - Dyspepsia [Fatal]
  - Gastrooesophageal reflux disease [Fatal]
  - Abdominal pain upper [Fatal]
  - White blood cells urine positive [Fatal]
  - Bacterial test positive [Fatal]
  - Pyrexia [Fatal]
  - Parosmia [Fatal]
  - Diarrhoea [Fatal]
  - Drug ineffective [Fatal]
  - Dysbiosis [Fatal]
  - Drug resistance [Fatal]
  - Inhibitory drug interaction [Fatal]
  - Breath odour [Fatal]
  - Oral discomfort [Fatal]
  - Pseudomembranous colitis [Not Recovered/Not Resolved]
  - Drug interaction [Not Recovered/Not Resolved]
  - Potentiating drug interaction [Unknown]
  - Labelled drug-drug interaction medication error [Unknown]
  - Abdominal pain [Not Recovered/Not Resolved]
  - Urine odour abnormal [Unknown]
  - Taste disorder [Not Recovered/Not Resolved]
  - White blood cells urine [Unknown]
  - Product use in unapproved indication [Unknown]
